FAERS Safety Report 5370093-6 (Version None)
Quarter: 2007Q2

REPORT INFORMATION
  Report Type: 
  Country: None (occurrence: None)
  Receive Date: 20070626
  Receipt Date: 20070615
  Transmission Date: 20071010
  Serious: Yes (Congenital Anomaly)
  Sender: FDA-Public Use
  Company Number: GB-JNJFOC-20050402074

PATIENT
  Sex: Female
  Weight: 2.34 kg

DRUGS (1)
  1. MEBENDAZOLE [Suspect]
     Indication: DRUG USE FOR UNKNOWN INDICATION
     Route: 015

REACTIONS (5)
  - ARTHRITIS REACTIVE [None]
  - ARTHROPATHY [None]
  - HIP DYSPLASIA [None]
  - STRABISMUS [None]
  - UPPER RESPIRATORY TRACT INFECTION [None]
